FAERS Safety Report 7292681-2 (Version None)
Quarter: 2011Q1

REPORT INFORMATION
  Report Type: 
  Country: None (occurrence: None)
  Receive Date: 20110215
  Receipt Date: 20110210
  Transmission Date: 20110831
  Serious: Yes (Death, Other)
  Sender: FDA-Public Use
  Company Number: PHHY2011BR11200

PATIENT
  Sex: Male

DRUGS (4)
  1. BENICAR [Concomitant]
     Indication: CARDIOVASCULAR DISORDER
     Dosage: UNK
  2. DIOVAN HCT [Suspect]
     Indication: HYPERTENSION
     Dosage: 1 DF, QD
     Route: 048
     Dates: start: 20080101
  3. SPIRIVA [Concomitant]
     Indication: EMPHYSEMA
     Dosage: UNK
  4. ALENIA [Concomitant]
     Indication: EMPHYSEMA
     Dosage: UNK

REACTIONS (4)
  - CEREBROVASCULAR ACCIDENT [None]
  - LUNG DISORDER [None]
  - ACUTE MYOCARDIAL INFARCTION [None]
  - PNEUMONIA [None]
